FAERS Safety Report 18136523 (Version 2)
Quarter: 2020Q3

REPORT INFORMATION
  Report Type: Spontaneous
  Country: US (occurrence: US)
  Receive Date: 20200811
  Receipt Date: 20200812
  Transmission Date: 20201103
  Serious: No
  Sender: FDA-Public Use
  Company Number: NVSC2020US221550

PATIENT
  Sex: Female

DRUGS (1)
  1. PATADAY [Suspect]
     Active Substance: OLOPATADINE HYDROCHLORIDE
     Indication: PRODUCT USED FOR UNKNOWN INDICATION
     Dosage: 0.2 %, QD ((OTC) (UNK  FTW ASPEX))
     Route: 065

REACTIONS (3)
  - Eye pruritus [Recovered/Resolved]
  - Hypersensitivity [Unknown]
  - Eyelid oedema [Unknown]
